FAERS Safety Report 25877171 (Version 1)
Quarter: 2025Q4

REPORT INFORMATION
  Report Type: Spontaneous
  Country: US (occurrence: None)
  Receive Date: 20251002
  Receipt Date: 20251002
  Transmission Date: 20260118
  Serious: Yes (Hospitalization)
  Sender: FDA-CTU
  Company Number: None

PATIENT
  Age: 74 Year
  Sex: Female

DRUGS (10)
  1. RINVOQ [Suspect]
     Active Substance: UPADACITINIB
     Indication: Crohn^s disease
     Dosage: 30MG ER  DAILY ORAL
     Route: 048
     Dates: start: 20250718
  2. PRAVASTATIN [Concomitant]
     Active Substance: PRAVASTATIN
  3. SYNTHROID [Concomitant]
     Active Substance: LEVOTHYROXINE SODIUM
  4. PIOGLITAZONE [Concomitant]
     Active Substance: PIOGLITAZONE
  5. PREDNISONE [Concomitant]
     Active Substance: PREDNISONE
  6. OZEMPIC [Concomitant]
     Active Substance: SEMAGLUTIDE
  7. ONDANSETRON [Concomitant]
     Active Substance: ONDANSETRON
  8. METHENAMINE HIPPURATE [Concomitant]
     Active Substance: METHENAMINE HIPPURATE
  9. ESTRADIOL [Concomitant]
     Active Substance: ESTRADIOL
  10. MERCAPTOPURINE [Concomitant]
     Active Substance: MERCAPTOPURINE

REACTIONS (1)
  - Large intestinal haemorrhage [None]

NARRATIVE: CASE EVENT DATE: 20250908
